FAERS Safety Report 7029243-8 (Version None)
Quarter: 2010Q3

REPORT INFORMATION
  Report Type: 
  Country: None (occurrence: None)
  Receive Date: 20100924
  Receipt Date: 20090807
  Transmission Date: 20110219
  Serious: Yes (Life-Threatening, Hospitalization, Other)
  Sender: FDA-Public Use
  Company Number: WAES 0908USA01346

PATIENT
  Age: 51 Year
  Sex: Male
  Weight: 86.1834 kg

DRUGS (8)
  1. VYTORIN [Suspect]
     Indication: BLOOD CHOLESTEROL INCREASED
     Dosage: 10-80 MG/DAILY/PO
     Route: 048
     Dates: start: 20060101, end: 20090801
  2. VYTORIN [Suspect]
     Indication: DIABETES MELLITUS
     Dosage: 10-80 MG/DAILY/PO
     Route: 048
     Dates: start: 20060101, end: 20090801
  3. ABILIFY [Concomitant]
  4. DEPAKOTE [Concomitant]
  5. ATENOLOL [Concomitant]
  6. FLUOXYMESTERONE [Concomitant]
  7. HYDROCHLOROTHIAZIDE [Concomitant]
  8. LEVOTHYROXINE SODIUM [Concomitant]

REACTIONS (1)
  - RHABDOMYOLYSIS [None]
